FAERS Safety Report 5272858-8 (Version None)
Quarter: 2007Q1

REPORT INFORMATION
  Report Type: 
  Country: None (occurrence: None)
  Receive Date: 20070322
  Receipt Date: 20070309
  Transmission Date: 20070707
  Serious: Yes (Hospitalization)
  Sender: FDA-Public Use
  Company Number: PHBS2007JP03105

PATIENT
  Age: 38 Year
  Sex: Female

DRUGS (5)
  1. LOPRESSOR [Suspect]
     Indication: INCORRECT DOSE ADMINISTERED
     Dosage: 200 MG, ONCE/SINGLE
     Route: 048
  2. CIBENOL [Suspect]
     Indication: INCORRECT DOSE ADMINISTERED
     Dosage: 1000 MG, ONCE/SINGLE
     Route: 048
  3. TOLEDOMIN [Suspect]
     Indication: INCORRECT DOSE ADMINISTERED
     Dosage: 200 MG, ONCE/SINGLE
     Route: 048
  4. SOLANAX [Suspect]
     Indication: INCORRECT DOSE ADMINISTERED
     Dosage: 96 MG, ONCE/SINGLE
     Route: 048
  5. DOGMATYL [Suspect]
     Indication: INCORRECT DOSE ADMINISTERED
     Dosage: 400 MG, ONCE/SINGLE
     Route: 048

REACTIONS (8)
  - ABDOMINAL PAIN [None]
  - ATRIOVENTRICULAR BLOCK COMPLETE [None]
  - CARDIAC ARREST [None]
  - GLASGOW COMA SCALE ABNORMAL [None]
  - INTENTIONAL OVERDOSE [None]
  - LOSS OF CONSCIOUSNESS [None]
  - SHOCK [None]
  - VOMITING [None]
